FAERS Safety Report 10518894 (Version 1)
Quarter: 2014Q4

REPORT INFORMATION
  Report Type: Spontaneous
  Country: US (occurrence: None)
  Receive Date: 20141014
  Receipt Date: 20141014
  Transmission Date: 20150528
  Serious: Yes (Disabling)
  Sender: FDA-Public Use
  Company Number: None

PATIENT
  Age: 54 Year
  Sex: Female
  Weight: 68.95 kg

DRUGS (2)
  1. CIPROFLOXACIN. [Suspect]
     Active Substance: CIPROFLOXACIN
     Indication: SEPSIS
     Dosage: 500 MG TWICE A DAY TWICE DAILY
     Dates: start: 20140321, end: 20140406
  2. CIPROFLOXACIN. [Suspect]
     Active Substance: CIPROFLOXACIN
     Indication: PYELONEPHRITIS
     Dosage: 500 MG TWICE A DAY TWICE DAILY
     Dates: start: 20140321, end: 20140406

REACTIONS (4)
  - Pain in extremity [None]
  - Arthralgia [None]
  - Tendon rupture [None]
  - Musculoskeletal pain [None]

NARRATIVE: CASE EVENT DATE: 20140317
